FAERS Safety Report 17129177 (Version 1)
Quarter: 2019Q4

REPORT INFORMATION
  Report Type: Spontaneous
  Country: US (occurrence: US)
  Receive Date: 20191208
  Receipt Date: 20191208
  Transmission Date: 20200122
  Serious: Yes (Other)
  Sender: FDA-Public Use
  Company Number: None

PATIENT
  Age: 33 Year
  Sex: Male
  Weight: 90 kg

DRUGS (4)
  1. ZYPREXA [Suspect]
     Active Substance: OLANZAPINE
     Indication: FEELING ABNORMAL
  2. INVEGA [Suspect]
     Active Substance: PALIPERIDONE
  3. RISPERDAL [Suspect]
     Active Substance: RISPERIDONE
  4. DEPAKOTE [Suspect]
     Active Substance: DIVALPROEX SODIUM

REACTIONS (3)
  - Suicide attempt [None]
  - Memory impairment [None]
  - Disorientation [None]
